FAERS Safety Report 22320605 (Version 1)
Quarter: 2023Q2

REPORT INFORMATION
  Report Type: Spontaneous
  Country: NO (occurrence: NO)
  Receive Date: 20230515
  Receipt Date: 20230515
  Transmission Date: 20230721
  Serious: Yes (Other)
  Sender: FDA-Public Use
  Company Number: NO-BAYER-2023A062374

PATIENT
  Age: 53 Year
  Sex: Male

DRUGS (1)
  1. STIVARGA [Suspect]
     Active Substance: REGORAFENIB
     Indication: Gastrointestinal cancer metastatic
     Dosage: UNK

REACTIONS (4)
  - Carcinoembryonic antigen increased [None]
  - Gastrointestinal cancer metastatic [None]
  - Metastases to lung [None]
  - Metastases to lymph nodes [None]
